FAERS Safety Report 5750410-5 (Version None)
Quarter: 2008Q2

REPORT INFORMATION
  Report Type: 
  Country: None (occurrence: None)
  Receive Date: 20080523
  Receipt Date: 20080523
  Transmission Date: 20081010
  Serious: Yes (Life-Threatening, Other)
  Sender: FDA-Public Use
  Company Number: None

PATIENT
  Age: 45 Year
  Sex: Male
  Weight: 90.7194 kg

DRUGS (10)
  1. CHANTIX [Suspect]
     Indication: SMOKING CESSATION THERAPY
     Dosage: .5MG  ONCE DAILY PO
     Route: 048
     Dates: start: 20070123, end: 20070126
  2. METFORMIN HCL [Concomitant]
  3. ACTOS [Concomitant]
  4. GABAPENTIN [Concomitant]
  5. METOCLOPRAMIDE [Concomitant]
  6. REQUIP [Concomitant]
  7. SEROQUEL [Concomitant]
  8. IBUROFEN [Concomitant]
  9. ATENOLOL [Concomitant]
  10. LISINOPRIL [Concomitant]

REACTIONS (3)
  - PARANOIA [None]
  - PSYCHOTIC DISORDER [None]
  - SUICIDAL IDEATION [None]
